FAERS Safety Report 5519140-9 (Version None)
Quarter: 2007Q4

REPORT INFORMATION
  Report Type: 
  Country: None (occurrence: None)
  Receive Date: 20071114
  Receipt Date: 20071114
  Transmission Date: 20080405
  Serious: No
  Sender: FDA-Public Use
  Company Number: None

PATIENT
  Age: 73 Year
  Sex: Male
  Weight: 79.3795 kg

DRUGS (1)
  1. VIAGRA [Suspect]
     Indication: ERECTILE DYSFUNCTION
     Dosage: 1 90 MIN. BEFORE SEX PO
     Route: 048
     Dates: start: 20061128, end: 20061128

REACTIONS (3)
  - PHOTOPSIA [None]
  - VISION BLURRED [None]
  - VISUAL DISTURBANCE [None]
